FAERS Safety Report 19706619 (Version 1)
Quarter: 2021Q3

REPORT INFORMATION
  Report Type: Other
  Country: NO (occurrence: NO)
  Receive Date: 20210817
  Receipt Date: 20210817
  Transmission Date: 20211014
  Serious: Yes (Death)
  Sender: FDA-Public Use
  Company Number: NO-ORCHID HEALTHCARE-2115148

PATIENT
  Sex: Female

DRUGS (1)
  1. AMLODIPINE BESYLATE. [Suspect]
     Active Substance: AMLODIPINE BESYLATE
     Route: 065

REACTIONS (10)
  - Blood pressure decreased [Unknown]
  - Overdose [Fatal]
  - White blood cell count increased [Unknown]
  - Blood glucose increased [Unknown]
  - Oxygen saturation decreased [Unknown]
  - Nodal rhythm [Unknown]
  - Poisoning [Fatal]
  - Pneumonia aspiration [Fatal]
  - Drug level above therapeutic [Unknown]
  - Heart rate decreased [Unknown]
